FAERS Safety Report 4759527-5 (Version None)
Quarter: 2005Q3

REPORT INFORMATION
  Report Type: 
  Country: None (occurrence: None)
  Receive Date: 20050831
  Receipt Date: 20050822
  Transmission Date: 20060218
  Serious: Yes (Hospitalization)
  Sender: FDA-Public Use
  Company Number: TPA2005A00963

PATIENT
  Age: 77 Year
  Sex: Female
  Weight: 149.687 kg

DRUGS (2)
  1. ACTOS [Suspect]
     Indication: DIABETES MELLITUS
     Dosage: 30 MG, 1 IN 1 D, PER ORAL
     Route: 048
  2. AMARYL [Concomitant]

REACTIONS (3)
  - CONDITION AGGRAVATED [None]
  - HYPOACUSIS [None]
  - PNEUMONIA [None]
